FAERS Safety Report 8405351-1 (Version None)
Quarter: 2012Q2

REPORT INFORMATION
  Report Type: 
  Country: None (occurrence: None)
  Receive Date: 20120604
  Receipt Date: 20120521
  Transmission Date: 20120825
  Serious: Yes (Other)
  Sender: FDA-Public Use
  Company Number: GB-RANBAXY-2012R1-56135

PATIENT
  Age: 68 Year
  Sex: Female

DRUGS (5)
  1. CANDESARTAN CILEXETIL [Concomitant]
     Indication: PRODUCT USED FOR UNKNOWN INDICATION
     Dosage: 16 MG, QD
     Route: 065
     Dates: start: 20101118
  2. LISINOPRIL [Suspect]
     Indication: HYPERTENSION
     Dosage: 20 MG, QD
     Route: 048
     Dates: start: 20120424, end: 20120427
  3. FLUTICASONE PROPIONATE/SALMETEROL [Concomitant]
     Indication: ASTHMA
     Dosage: 2 DF, BID
     Route: 055
     Dates: start: 20110822
  4. PREMARIN [Concomitant]
     Indication: PRODUCT USED FOR UNKNOWN INDICATION
     Dosage: UNK
     Route: 065
     Dates: start: 20110119
  5. ALBUTEROL [Concomitant]
     Indication: ASTHMA
     Dosage: 2 DF, PRN
     Route: 055
     Dates: start: 20110420

REACTIONS (3)
  - HYPERTENSION [None]
  - FEELING HOT [None]
  - ABDOMINAL PAIN UPPER [None]
